FAERS Safety Report 4354658-6 (Version None)
Quarter: 2004Q2

REPORT INFORMATION
  Report Type: 
  Country: None (occurrence: None)
  Receive Date: 20040506
  Receipt Date: 20040506
  Transmission Date: 20050107
  Serious: Yes (Hospitalization)
  Sender: FDA-Public Use
  Company Number: None

PATIENT
  Sex: Female
  Weight: 45 kg

DRUGS (2)
  1. ULTRACET [Suspect]
     Indication: HEADACHE
     Dosage: 1 Q 4 HRS PO
     Route: 048
     Dates: start: 20040428, end: 20040501
  2. TYLENOL (CAPLET) [Concomitant]

REACTIONS (4)
  - ASTHENIA [None]
  - DIZZINESS [None]
  - JAUNDICE [None]
  - OCULAR ICTERUS [None]
